FAERS Safety Report 20618092 (Version 1)
Quarter: 2022Q1

REPORT INFORMATION
  Report Type: Spontaneous
  Country: US (occurrence: None)
  Receive Date: 20220321
  Receipt Date: 20220321
  Transmission Date: 20220423
  Serious: Yes (unspecified)
  Sender: FDA-Public Use
  Company Number: None

PATIENT
  Sex: Female

DRUGS (4)
  1. ESTRADIOL\PROGESTERONE [Suspect]
     Active Substance: ESTRADIOL\PROGESTERONE
     Indication: Postmenopause
     Dosage: OTHER QUANTITY : 1 APPLICATION;?FREQUENCY : DAILY;?
     Route: 061
     Dates: start: 20140301, end: 20220319
  2. VITAMINS [Concomitant]
     Active Substance: VITAMINS
  3. FISH OIL [Concomitant]
     Active Substance: FISH OIL
  4. CALCIUM [Concomitant]
     Active Substance: CALCIUM

REACTIONS (5)
  - Limb discomfort [None]
  - Paraesthesia [None]
  - Paraesthesia [None]
  - Ear congestion [None]
  - Neurological symptom [None]

NARRATIVE: CASE EVENT DATE: 20211101
